FAERS Safety Report 4897106-X (Version None)
Quarter: 2006Q1

REPORT INFORMATION
  Report Type: 
  Country: None (occurrence: None)
  Receive Date: 20060127
  Receipt Date: 20060112
  Transmission Date: 20060701
  Serious: Yes (Hospitalization)
  Sender: FDA-Public Use
  Company Number: ST-2006-008807

PATIENT
  Age: 69 Year
  Sex: Male

DRUGS (5)
  1. OLMETEC [Suspect]
     Indication: HYPERTENSION
     Dosage: 20 MG QD PO
     Route: 048
     Dates: start: 20050810, end: 20050910
  2. GLUCOBAY [Concomitant]
  3. NORVASC [Concomitant]
  4. AMARYL [Concomitant]
  5. LIVALO [Concomitant]

REACTIONS (4)
  - BRADYCARDIA [None]
  - FEELING ABNORMAL [None]
  - HYPOKALAEMIA [None]
  - SICK SINUS SYNDROME [None]
